FAERS Safety Report 4902793-3 (Version None)
Quarter: 2006Q1

REPORT INFORMATION
  Report Type: 
  Country: None (occurrence: None)
  Receive Date: 20060207
  Receipt Date: 20060131
  Transmission Date: 20060701
  Serious: Yes (Death, Hospitalization)
  Sender: FDA-Public Use
  Company Number: 2005-UK-01461UK

PATIENT
  Sex: Female

DRUGS (10)
  1. VENTOLIN [Suspect]
     Route: 065
  2. FLIXOTIDE [Suspect]
     Route: 065
  3. SPIRIVA [Suspect]
     Indication: CHRONIC OBSTRUCTIVE PULMONARY DISEASE
     Dosage: 18MCG PER DAY
     Route: 055
  4. CLOTRIMAZOLE [Suspect]
     Route: 065
  5. ASPIRIN [Suspect]
     Dosage: 75MG PER DAY
     Route: 065
  6. CALCICHEW D3 [Suspect]
     Route: 065
  7. GAVISCON [Suspect]
     Route: 065
  8. PANTOPRAZOLE [Suspect]
     Route: 065
  9. PREDNISOLONE [Suspect]
     Route: 065
  10. RAMIPRIL [Suspect]
     Route: 065

REACTIONS (3)
  - CARDIAC FAILURE [None]
  - PANCREATITIS ACUTE [None]
  - PERITONITIS [None]
